FAERS Safety Report 10886640 (Version 1)
Quarter: 2015Q1

REPORT INFORMATION
  Report Type: Spontaneous
  Country: US (occurrence: US)
  Receive Date: 20150304
  Receipt Date: 20150304
  Transmission Date: 20150721
  Serious: No
  Sender: FDA-Public Use
  Company Number: US-GLAXOSMITHKLINE-US2015004861

PATIENT
  Age: 73 Year
  Sex: Female

DRUGS (14)
  1. ALBUTEROL. [Concomitant]
     Active Substance: ALBUTEROL
  2. LASIX [Concomitant]
     Active Substance: FUROSEMIDE
  3. POTASSIUM [Concomitant]
     Active Substance: POTASSIUM
  4. CLONIDINE. [Concomitant]
     Active Substance: CLONIDINE
  5. COD LIVER OIL [Concomitant]
     Active Substance: COD LIVER OIL
  6. IRON [Concomitant]
     Active Substance: IRON
  7. LOVASTATIN. [Concomitant]
     Active Substance: LOVASTATIN
  8. ASPIRIN. [Concomitant]
     Active Substance: ASPIRIN
  9. OXYGEN. [Concomitant]
     Active Substance: OXYGEN
  10. BUDESONIDE/FORMOTEROL INHALER [Concomitant]
  11. MAGNESIUM [Concomitant]
     Active Substance: MAGNESIUM
  12. ANORO ELLIPTA [Suspect]
     Active Substance: UMECLIDINIUM BROMIDE\VILANTEROL TRIFENATATE
     Indication: PRODUCT USED FOR UNKNOWN INDICATION
     Dosage: 1 PUFF(S), 1D
     Route: 055
     Dates: start: 20150105
  13. CALCIUM D [Concomitant]
     Active Substance: CALCIUM\VITAMIN D
  14. NIFEDIPINE. [Concomitant]
     Active Substance: NIFEDIPINE

REACTIONS (1)
  - Cough [Not Recovered/Not Resolved]

NARRATIVE: CASE EVENT DATE: 20150106
